FAERS Safety Report 7434723-7 (Version None)
Quarter: 2011Q2

REPORT INFORMATION
  Report Type: 
  Country: None (occurrence: None)
  Receive Date: 20110425
  Receipt Date: 20110419
  Transmission Date: 20111010
  Serious: Yes (Hospitalization, Other)
  Sender: FDA-Public Use
  Company Number: US-PFIZER INC-2011049842

PATIENT
  Sex: Female
  Weight: 82.5 kg

DRUGS (2)
  1. KLONOPIN [Concomitant]
     Indication: ANXIETY
     Dosage: PRN
     Route: 048
     Dates: end: 20110304
  2. GEODON [Suspect]
     Indication: DEPRESSION
     Dosage: 40 MG, 2X/DAY
     Route: 048
     Dates: end: 20110304

REACTIONS (3)
  - ARTERIOSPASM CORONARY [None]
  - ANGINA PECTORIS [None]
  - MYOCARDIAL INFARCTION [None]
